FAERS Safety Report 20060770 (Version 1)
Quarter: 2021Q4

REPORT INFORMATION
  Report Type: Spontaneous
  Country: BR (occurrence: BR)
  Receive Date: 20211112
  Receipt Date: 20211112
  Transmission Date: 20220303
  Serious: Yes (Other)
  Sender: FDA-Public Use
  Company Number: None

PATIENT
  Sex: Female
  Weight: 87.9 kg

DRUGS (5)
  1. LOSARTAN POTASSIUM [Suspect]
     Active Substance: LOSARTAN POTASSIUM
     Indication: Hypertension
     Dosage: 1 DF (IN THE MORNING AND AT NIGHT)
     Route: 048
  2. MIRTAZAPINE [Suspect]
     Active Substance: MIRTAZAPINE
     Indication: Generalised anxiety disorder
     Dosage: 1 DF (AT NIGHT)
     Route: 048
  3. CLOXAZOLAM [Suspect]
     Active Substance: CLOXAZOLAM
     Indication: Generalised anxiety disorder
     Dosage: 1 DF, QD (ONCE A AT NIGHT)
     Route: 048
     Dates: start: 1998
  4. AMITRIPTYLINE [Concomitant]
     Active Substance: AMITRIPTYLINE
     Indication: Generalised anxiety disorder
     Dosage: 1 DF (AT NIGHT)
     Route: 048
     Dates: start: 1998
  5. DIAZEPAM [Concomitant]
     Active Substance: DIAZEPAM
     Indication: Generalised anxiety disorder
     Dosage: 1 DF (AT NIGHT)
     Route: 048

REACTIONS (8)
  - Anxiety [Recovered/Resolved]
  - Fear [Recovering/Resolving]
  - Nervousness [Not Recovered/Not Resolved]
  - Weight increased [Not Recovered/Not Resolved]
  - Headache [Not Recovered/Not Resolved]
  - Illness [Unknown]
  - Hypertension [Not Recovered/Not Resolved]
  - Drug ineffective [Unknown]
